FAERS Safety Report 23766562 (Version 2)
Quarter: 2024Q2

REPORT INFORMATION
  Report Type: Spontaneous
  Country: FR (occurrence: FR)
  Receive Date: 20240422
  Receipt Date: 20240429
  Transmission Date: 20240716
  Serious: Yes (Hospitalization)
  Sender: FDA-Public Use
  Company Number: None

PATIENT
  Age: 75 Year
  Sex: Female
  Weight: 81 kg

DRUGS (2)
  1. CAPECITABINE [Suspect]
     Active Substance: CAPECITABINE
     Indication: Breast cancer metastatic
     Dosage: 1000 MG MORNING AND 1500 MG EVENING FOR 2 WEEKS OUT OF 3?DAILY DOSE: 2500 MILLIGRAM
     Route: 048
     Dates: start: 20230616
  2. CAPECITABINE [Suspect]
     Active Substance: CAPECITABINE
     Indication: Invasive ductal breast carcinoma
     Dosage: 1000 MG MORNING AND 1500 MG EVENING FOR 2 WEEKS OUT OF 3?DAILY DOSE: 2500 MILLIGRAM
     Route: 048
     Dates: start: 20230616

REACTIONS (1)
  - Pyelonephritis [Recovering/Resolving]

NARRATIVE: CASE EVENT DATE: 20240301
